FAERS Safety Report 20974351 (Version 1)
Quarter: 2022Q2

REPORT INFORMATION
  Report Type: Spontaneous
  Country: US (occurrence: None)
  Receive Date: 20220616
  Receipt Date: 20220616
  Transmission Date: 20220720
  Serious: Yes (Other)
  Sender: FDA-Public Use
  Company Number: None

PATIENT
  Age: 33 Year
  Sex: Male
  Weight: 70.3 kg

DRUGS (1)
  1. BEBTELOVIMAB [Suspect]
     Active Substance: BEBTELOVIMAB
     Indication: SARS-CoV-2 test positive
     Dosage: OTHER FREQUENCY : ONCE;?
     Route: 042
     Dates: start: 20220608, end: 20220608

REACTIONS (13)
  - Infusion related reaction [None]
  - Hypotension [None]
  - Paraesthesia [None]
  - Cold sweat [None]
  - Hyperhidrosis [None]
  - Nasopharyngitis [None]
  - Dizziness [None]
  - Vision blurred [None]
  - Headache [None]
  - Nausea [None]
  - Blindness [None]
  - Chills [None]
  - Fatigue [None]

NARRATIVE: CASE EVENT DATE: 20220608
